FAERS Safety Report 12761247 (Version 1)
Quarter: 2016Q3

REPORT INFORMATION
  Report Type: Spontaneous
  Country: US (occurrence: US)
  Receive Date: 20160920
  Receipt Date: 20160920
  Transmission Date: 20161109
  Serious: No
  Sender: FDA-Public Use
  Company Number: US-TEVA-634078USA

PATIENT
  Age: 42 Year
  Sex: Male

DRUGS (1)
  1. CARVEDILOL. [Suspect]
     Active Substance: CARVEDILOL

REACTIONS (3)
  - Dysphemia [Unknown]
  - Drug interaction [Unknown]
  - Speech disorder [Unknown]
